FAERS Safety Report 5953949-2 (Version None)
Quarter: 2008Q4

REPORT INFORMATION
  Report Type: 
  Country: None (occurrence: None)
  Receive Date: 20081114
  Receipt Date: 20080821
  Transmission Date: 20090506
  Serious: Yes (Other)
  Sender: FDA-Public Use
  Company Number: US-GENENTECH-266921

PATIENT
  Sex: Female

DRUGS (2)
  1. AVASTIN [Suspect]
     Indication: OVARIAN CANCER
  2. CHEMOTHERAPY (UNK INGREDIENTS) [Concomitant]
     Indication: OVARIAN CANCER

REACTIONS (1)
  - CARCINOEMBRYONIC ANTIGEN INCREASED [None]
